FAERS Safety Report 9911504 (Version 2)
Quarter: 2014Q1

REPORT INFORMATION
  Report Type: Spontaneous
  Country: BR (occurrence: BR)
  Receive Date: 20140219
  Receipt Date: 20140219
  Transmission Date: 20141002
  Serious: Yes (Other)
  Sender: FDA-Public Use
  Company Number: PHHY2013BR147294

PATIENT
  Age: 80 Year
  Sex: Male

DRUGS (11)
  1. EXELON [Suspect]
     Indication: DEMENTIA ALZHEIMER^S TYPE
     Dosage: 4.5 MG (3 CAPSULES OF 1.5 MG), PER DAY
     Route: 048
  2. EXELON [Suspect]
     Dosage: 9 MG (3 CAPSULES OF 3 MG), DAILY
     Route: 048
     Dates: start: 20131211
  3. EXELON [Suspect]
     Dosage: 4.5 MG (3 CAPSULES OF 1.5 MG), PER DAY
     Route: 048
  4. DIAMICRON [Concomitant]
     Dosage: UNK UKN, UNK
  5. PANTOPRAZOLE [Concomitant]
     Dosage: UNK UKN, UNK
  6. MICARDIS [Concomitant]
     Dosage: UNK UKN, UNK
  7. METFORMIN [Concomitant]
     Dosage: UNK UKN, UNK
  8. DEPAKOTE [Concomitant]
     Dosage: UNK UKN, UNK
  9. SOMALGIN [Concomitant]
     Dosage: UNK UKN, UNK
  10. MIRTAZAPINE [Concomitant]
     Dosage: UNK UKN, UNK
  11. D VITAMIINI [Concomitant]
     Dosage: UNK UKN, UNK

REACTIONS (6)
  - Nervousness [Recovered/Resolved]
  - Hypertension [Recovered/Resolved]
  - Dizziness [Recovered/Resolved]
  - Tremor [Recovered/Resolved]
  - Diarrhoea [Recovering/Resolving]
  - Inappropriate schedule of drug administration [Unknown]
